FAERS Safety Report 5128724-1 (Version None)
Quarter: 2006Q4

REPORT INFORMATION
  Report Type: 
  Country: None (occurrence: None)
  Receive Date: 20061017
  Receipt Date: 20061006
  Transmission Date: 20070319
  Serious: Yes (Other)
  Sender: FDA-Public Use
  Company Number: US-JNJFOC-20061000905

PATIENT
  Sex: Female
  Weight: 85.28 kg

DRUGS (1)
  1. REMICADE [Suspect]
     Indication: PSORIATIC ARTHROPATHY
     Dosage: ON 13 UNKNOWN CONCOMITANT MEDICATIONS.
     Route: 042

REACTIONS (4)
  - FALL [None]
  - HYPOKINESIA [None]
  - LOSS OF CONSCIOUSNESS [None]
  - TREMOR [None]
